FAERS Safety Report 5632539-5 (Version None)
Quarter: 2008Q1

REPORT INFORMATION
  Report Type: 
  Country: None (occurrence: None)
  Receive Date: 20080219
  Receipt Date: 20080207
  Transmission Date: 20080703
  Serious: Yes (Hospitalization)
  Sender: FDA-Public Use
  Company Number: 2008000295

PATIENT
  Age: 65 Year
  Sex: Female

DRUGS (5)
  1. ERLOTINIB (ERLOTINIB HC1) (TABLET) (ERLOTINIB HC1) [Suspect]
     Indication: NON-SMALL CELL LUNG CANCER
     Dosage: 150 MG, ORAL
     Route: 048
     Dates: start: 20071203
  2. BEVACIZUMAB (INJECTION FOR INFUSION) [Suspect]
     Dosage: 10 MG/KG, QOW, INTRAVENOUS
     Route: 042
     Dates: start: 20071203
  3. PACLITAXEL [Suspect]
     Dosage: 45 MG/M2, 1/WEEK, INTRAVENOUS
     Route: 042
     Dates: start: 20071203
  4. CARBOPLATIN [Suspect]
     Dosage: 2, 1/WEEK, INTRAVENOUS
     Route: 042
     Dates: start: 20071203
  5. RADIATION (RADIATION THERAPY) [Suspect]
     Dates: start: 20071203

REACTIONS (4)
  - FAILURE TO THRIVE [None]
  - ODYNOPHAGIA [None]
  - OESOPHAGITIS [None]
  - PAIN [None]
